FAERS Safety Report 11309542 (Version 1)
Quarter: 2015Q3

REPORT INFORMATION
  Report Type: Report from Study
  Country: US (occurrence: US)
  Receive Date: 20150724
  Receipt Date: 20150724
  Transmission Date: 20151125
  Serious: Yes (Other)
  Sender: FDA-Public Use
  Company Number: US-JNJFOC-20150603870

PATIENT
  Age: 77 Year
  Sex: Male
  Weight: 91.63 kg

DRUGS (29)
  1. LASIX [Concomitant]
     Active Substance: FUROSEMIDE
     Route: 048
     Dates: start: 20141208
  2. SLOW MAG [Concomitant]
     Active Substance: MAGNESIUM CHLORIDE
     Route: 048
  3. TESSALON [Concomitant]
     Active Substance: BENZONATATE
     Indication: COUGH
     Dosage: AS NEEDED
     Route: 048
     Dates: start: 20150417
  4. PRILOSEC [Concomitant]
     Active Substance: OMEPRAZOLE MAGNESIUM
     Dosage: MORNING
     Route: 048
     Dates: start: 20150225
  5. ATROVENT [Concomitant]
     Active Substance: IPRATROPIUM BROMIDE
     Indication: RHINITIS
     Dosage: 2 SPRAYS INTO EACH NOSTRIL, AS NEEDED
     Route: 045
     Dates: start: 20140514
  6. VITAMIN C [Concomitant]
     Active Substance: ASCORBIC ACID
     Dosage: IN THE MORNING
     Route: 048
  7. BENADRYL [Concomitant]
     Active Substance: DIPHENHYDRAMINE HYDROCHLORIDE
     Route: 048
  8. PHENERGAN W/ CODEINE [Concomitant]
     Active Substance: CODEINE PHOSPHATE\PROMETHAZINE HYDROCHLORIDE
     Dosage: 6.25MG - 10MG/ 5 ML, 1 TEASPOON FULL EVERY NGHT AT BED TIME
     Route: 048
     Dates: start: 20150107
  9. BETAPACE [Concomitant]
     Active Substance: SOTALOL HYDROCHLORIDE
     Route: 048
     Dates: start: 20150302
  10. DRISDOL [Concomitant]
     Active Substance: ERGOCALCIFEROL
     Dosage: 50000 UNIT
     Route: 048
     Dates: start: 20150108
  11. LIPITOR [Concomitant]
     Active Substance: ATORVASTATIN CALCIUM
     Dosage: EVERYNIGHT AT BED TIME
     Route: 048
     Dates: start: 20141208
  12. COUMADIN [Concomitant]
     Active Substance: WARFARIN SODIUM
     Indication: ANTICOAGULANT THERAPY
     Dosage: TUESDAY AND SATURDAY
     Route: 065
     Dates: start: 20141208
  13. NIZORAL [Concomitant]
     Active Substance: KETOCONAZOLE
     Indication: SKIN DISORDER
     Dosage: AS NEEDED ON AFFECTED AREA
  14. NITROSTAT [Concomitant]
     Active Substance: NITROGLYCERIN
     Indication: CHEST PAIN
     Dosage: UNDER THE TONGUE
     Route: 060
     Dates: start: 20141023
  15. CHONDROITIN [Concomitant]
     Active Substance: CHONDROITIN
     Dosage: 2 CAPSULES, 500 MG - 400 MG
     Route: 048
  16. CORTIZONE 10 [Concomitant]
     Active Substance: HYDROCORTISONE
     Indication: PRURITUS
     Route: 061
  17. COUMADIN [Concomitant]
     Active Substance: WARFARIN SODIUM
     Indication: ANTICOAGULANT THERAPY
     Dosage: ALL OTHER DAYS
     Route: 065
     Dates: start: 20141208
  18. LOFIBRA [Concomitant]
     Active Substance: FENOFIBRATE
     Route: 048
     Dates: start: 20141208
  19. KENALOG [Concomitant]
     Active Substance: TRIAMCINOLONE ACETONIDE
     Indication: RASH PRURITIC
     Dosage: AS NEEDED ON AFFECTED AREA
  20. REMICADE [Suspect]
     Active Substance: INFLIXIMAB
     Indication: PSORIATIC ARTHROPATHY
     Route: 042
     Dates: end: 20150430
  21. IMODIUM [Concomitant]
     Active Substance: LOPERAMIDE HYDROCHLORIDE
     Route: 048
     Dates: start: 20150310
  22. VITAMIN B12 [Concomitant]
     Active Substance: CYANOCOBALAMIN
     Dosage: 1000 MCG/ML
     Route: 030
     Dates: start: 20140329
  23. FERROUS SULFATE [Concomitant]
     Active Substance: FERROUS SULFATE\FERROUS SULFATE, DRIED
     Dosage: IN THE MORNING
     Route: 048
  24. TYLENOL [Concomitant]
     Active Substance: ACETAMINOPHEN
     Indication: ARTHRITIS
     Route: 048
  25. ASPIRIN. [Concomitant]
     Active Substance: ASPIRIN
     Route: 048
  26. GLUCOSAMINE [Concomitant]
     Active Substance: GLUCOSAMINE
     Dosage: 500 MG - 400 MG
     Route: 048
  27. COREG [Concomitant]
     Active Substance: CARVEDILOL
     Route: 048
     Dates: start: 20140613
  28. ZETIA [Concomitant]
     Active Substance: EZETIMIBE
     Route: 048
     Dates: start: 20140606
  29. FLONASE [Concomitant]
     Active Substance: FLUTICASONE PROPIONATE
     Dosage: 2 SPARYS IN EACH NOSTRIL EVERY DAY
     Route: 045
     Dates: start: 20140507

REACTIONS (4)
  - Pneumonia bacterial [Recovering/Resolving]
  - Bronchiolitis [Recovering/Resolving]
  - Pneumonitis [Recovering/Resolving]
  - Upper respiratory tract infection [Recovering/Resolving]

NARRATIVE: CASE EVENT DATE: 201501
